FAERS Safety Report 23690088 (Version 1)
Quarter: 2024Q2

REPORT INFORMATION
  Report Type: Spontaneous
  Country: US (occurrence: US)
  Receive Date: 20240401
  Receipt Date: 20240401
  Transmission Date: 20240715
  Serious: Yes (Other)
  Sender: FDA-Public Use
  Company Number: US-SANOFI-01994366

PATIENT
  Age: 89 Year
  Sex: Female

DRUGS (1)
  1. KEVZARA [Suspect]
     Active Substance: SARILUMAB
     Indication: Polymyalgia rheumatica
     Dosage: UNK

REACTIONS (8)
  - Polymyalgia rheumatica [Unknown]
  - Kidney infection [Unknown]
  - Pain [Unknown]
  - Skin infection [Unknown]
  - Swelling face [Unknown]
  - Localised infection [Unknown]
  - Headache [Unknown]
  - Urinary tract infection [Unknown]
